APPROVED DRUG PRODUCT: HALOPERIDOL DECANOATE
Active Ingredient: HALOPERIDOL DECANOATE
Strength: EQ 50MG BASE/ML
Dosage Form/Route: INJECTABLE;INJECTION
Application: A075440 | Product #001 | TE Code: AO
Applicant: MYLAN LABORATORIES LTD
Approved: Feb 28, 2000 | RLD: No | RS: No | Type: RX